FAERS Safety Report 6325840-3 (Version None)
Quarter: 2009Q3

REPORT INFORMATION
  Report Type: 
  Country: None (occurrence: None)
  Receive Date: 20090824
  Receipt Date: 20090814
  Transmission Date: 20100115
  Serious: Yes (Life-Threatening, Hospitalization, Other)
  Sender: FDA-Public Use
  Company Number: US-ABBOTT-09P-163-0591290-00

PATIENT
  Sex: Female
  Weight: 81.72 kg

DRUGS (4)
  1. HUMIRA [Suspect]
     Indication: PSORIASIS
     Dates: start: 20090201
  2. HUMIRA [Suspect]
  3. HUMIRA [Suspect]
  4. HUMIRA [Suspect]

REACTIONS (9)
  - ALLERGIC OEDEMA [None]
  - ANAEMIA [None]
  - ASTHENIA [None]
  - CHEST PAIN [None]
  - FOOD ALLERGY [None]
  - INJECTION SITE PAIN [None]
  - PALLOR [None]
  - PNEUMONIA [None]
  - PSORIASIS [None]
